FAERS Safety Report 4731201-0 (Version None)
Quarter: 2005Q3

REPORT INFORMATION
  Report Type: 
  Country: None (occurrence: None)
  Receive Date: 20050729
  Receipt Date: 20050716
  Transmission Date: 20060218
  Serious: Yes (Death)
  Sender: FDA-Public Use
  Company Number: 2005S1006351

PATIENT
  Age: 76 Year
  Sex: Male

DRUGS (13)
  1. CLOZAPINE [Suspect]
     Dosage: SEE IMAGE
     Route: 048
     Dates: start: 20050527, end: 20050613
  2. CLOZAPINE [Suspect]
     Dosage: SEE IMAGE
     Route: 048
     Dates: start: 20050527
  3. CLOZAPINE [Suspect]
     Dosage: SEE IMAGE
     Route: 048
     Dates: start: 20050613
  4. CLOZAPINE [Suspect]
     Dosage: SEE IMAGE
     Route: 048
     Dates: start: 20050613
  5. CARBIDOPA AND LEVODOPA [Concomitant]
  6. ALPRAZOLAM [Concomitant]
  7. VALPROATE SODIUM [Concomitant]
  8. PHENYTOIN SODIUM CAP [Concomitant]
  9. FUROSEMIDE [Concomitant]
  10. ESCITALOPRAM [Concomitant]
  11. LISINOPRIL [Concomitant]
  12. PRAMIPEXOLE DIHYDROCHLORIDE [Concomitant]
  13. MORPHINE [Concomitant]

REACTIONS (1)
  - DEATH [None]
